FAERS Safety Report 6835778-0 (Version None)
Quarter: 2010Q3

REPORT INFORMATION
  Report Type: 
  Country: None (occurrence: None)
  Receive Date: 20100713
  Receipt Date: 20100708
  Transmission Date: 20110219
  Serious: Yes (Hospitalization, Other)
  Sender: FDA-Public Use
  Company Number: DK-ROXANE LABORATORIES, INC.-2010-RO-00817RO

PATIENT
  Age: 31 Year
  Sex: Female

DRUGS (5)
  1. AZATHIOPRINE [Suspect]
     Indication: CROHN'S DISEASE
     Dosage: 150 MG
  2. PREDNISOLONE [Suspect]
     Indication: CROHN'S DISEASE
     Dosage: 15 MG
  3. CIPROFLOXACIN [Suspect]
     Indication: GASTROENTERITIS BACTERIAL
  4. PENICILLIN [Suspect]
  5. METRONIDAZOLE [Suspect]

REACTIONS (3)
  - CYTOMEGALOVIRUS INFECTION [None]
  - HISTIOCYTOSIS HAEMATOPHAGIC [None]
  - RECTAL HAEMORRHAGE [None]
